FAERS Safety Report 5010311-7 (Version None)
Quarter: 2006Q2

REPORT INFORMATION
  Report Type: 
  Country: None (occurrence: None)
  Receive Date: 20060404
  Receipt Date: 20060208
  Transmission Date: 20061013
  Serious: Yes (Death)
  Sender: FDA-Public Use
  Company Number: US200602000392

PATIENT
  Age: 39 Year
  Sex: Male
  Weight: 87.1 kg

DRUGS (7)
  1. CYMBALTA [Suspect]
     Indication: DIABETIC NEUROPATHY
     Dosage: 60 MG, CAP
     Dates: start: 20051213
  2. LANTUS [Concomitant]
  3. XANAX /USA/ (ALPRAZOLAM) [Concomitant]
  4. NEURONTIN [Concomitant]
  5. MORPHINE [Concomitant]
  6. AMBIEN [Concomitant]
  7. VICODIN [Concomitant]

REACTIONS (1)
  - COMPLETED SUICIDE [None]
